FAERS Safety Report 6903008-7 (Version None)
Quarter: 2010Q3

REPORT INFORMATION
  Report Type: 
  Country: None (occurrence: None)
  Receive Date: 20100803
  Receipt Date: 20080907
  Transmission Date: 20110219
  Serious: Yes (Other)
  Sender: FDA-Public Use
  Company Number: US-PFIZER INC-2008075528

PATIENT
  Age: 33 Year
  Sex: Female
  Weight: 72.6 kg

DRUGS (1)
  1. LYRICA [Suspect]
     Indication: NERVE COMPRESSION
     Dates: start: 20080820, end: 20080904

REACTIONS (2)
  - LOCAL SWELLING [None]
  - MUSCLE SPASMS [None]
